FAERS Safety Report 5355317-3 (Version None)
Quarter: 2007Q2

REPORT INFORMATION
  Report Type: 
  Country: None (occurrence: None)
  Receive Date: 20070601
  Receipt Date: 20070316
  Transmission Date: 20071010
  Serious: No
  Sender: FDA-Public Use
  Company Number: S07-USA-01199-01

PATIENT

DRUGS (2)
  1. CAMPRAL [Suspect]
  2. LIBRIUM [Suspect]

REACTIONS (2)
  - DRUG INTERACTION [None]
  - VOMITING [None]
